APPROVED DRUG PRODUCT: GADAVIST
Active Ingredient: GADOBUTROL
Strength: 18.1416GM/30ML (604.72MG/ML)
Dosage Form/Route: SOLUTION;INTRAVENOUS
Application: N201277 | Product #004 | TE Code: AP
Applicant: BAYER HEALTHCARE PHARMACEUTICALS INC
Approved: Mar 14, 2011 | RLD: Yes | RS: Yes | Type: RX